APPROVED DRUG PRODUCT: VIREAD
Active Ingredient: TENOFOVIR DISOPROXIL FUMARATE
Strength: 300MG
Dosage Form/Route: TABLET;ORAL
Application: N021356 | Product #001 | TE Code: AB
Applicant: GILEAD SCIENCES INC
Approved: Oct 26, 2001 | RLD: Yes | RS: Yes | Type: RX